FAERS Safety Report 6747535-4 (Version None)
Quarter: 2010Q2

REPORT INFORMATION
  Report Type: 
  Country: None (occurrence: None)
  Receive Date: 20100528
  Receipt Date: 20100519
  Transmission Date: 20101027
  Serious: Yes (Other)
  Sender: FDA-Public Use
  Company Number: US-SANOFI-AVENTIS-2010SA023330

PATIENT
  Age: 74 Year
  Sex: Male

DRUGS (12)
  1. MULTAQ [Suspect]
     Indication: ATRIAL FIBRILLATION
     Route: 048
     Dates: start: 20100417
  2. TAMSULOSIN HCL [Concomitant]
     Indication: PROSTATIC DISORDER
     Dosage: DOSE:0.4 UNIT(S)
  3. LISINOPRIL [Concomitant]
     Dates: end: 20100512
  4. WARFARIN SODIUM [Concomitant]
  5. AVODART [Concomitant]
     Indication: PROSTATIC DISORDER
  6. SIMVASTATIN [Concomitant]
     Dates: end: 20100422
  7. SIMVASTATIN [Concomitant]
     Dates: start: 20100423
  8. DIGOXIN [Concomitant]
     Dates: end: 20100422
  9. METAMUCIL-2 [Concomitant]
  10. ONE-A-DAY [Concomitant]
  11. METOPROLOL [Concomitant]
     Dates: end: 20100516
  12. METOPROLOL [Concomitant]
     Dates: start: 20100517

REACTIONS (6)
  - ATRIAL FIBRILLATION [None]
  - BLOOD PRESSURE INCREASED [None]
  - DYSPNOEA [None]
  - HEART RATE INCREASED [None]
  - PALPITATIONS [None]
  - WEIGHT INCREASED [None]
